FAERS Safety Report 14667256 (Version 2)
Quarter: 2018Q2

REPORT INFORMATION
  Report Type: Spontaneous
  Country: US (occurrence: US)
  Receive Date: 20180322
  Receipt Date: 20180618
  Transmission Date: 20180711
  Serious: No
  Sender: FDA-Public Use
  Company Number: US-BRISTOL-MYERS SQUIBB COMPANY-BMS-2018-026360

PATIENT
  Sex: Male
  Weight: 92.7 kg

DRUGS (1)
  1. YERVOY [Suspect]
     Active Substance: IPILIMUMAB
     Indication: METASTATIC MALIGNANT MELANOMA
     Dosage: 10 MG/KG, EVERY 21 DAYS FOR FOUR DOSES AND EVERY 3 MONTHS THEREAFTER
     Route: 042
     Dates: start: 20170518

REACTIONS (1)
  - Weight decreased [Unknown]
